FAERS Safety Report 4753408-9 (Version None)
Quarter: 2005Q3

REPORT INFORMATION
  Report Type: 
  Country: None (occurrence: None)
  Receive Date: 20050824
  Receipt Date: 20050407
  Transmission Date: 20060218
  Serious: Yes (Hospitalization)
  Sender: FDA-Public Use
  Company Number: SK-SUKLSK-20050474

PATIENT
  Age: 58 Year
  Sex: Female

DRUGS (7)
  1. CEROXIM: [Suspect]
     Dosage: UNSPECIFIED UNIT INTERVAL ORAL
     Route: 048
     Dates: start: 20050206, end: 20051106
  2. CLARITIN [Concomitant]
  3. BEROTEC [Concomitant]
  4. FLUVOXAMINE MALEATE [Concomitant]
  5. XANAX [Concomitant]
  6. VASOCARDIN [Concomitant]
  7. FLIXOTIDE [Concomitant]

REACTIONS (1)
  - TOXIC SKIN ERUPTION [None]
